FAERS Safety Report 10948138 (Version 1)
Quarter: 2015Q1

REPORT INFORMATION
  Report Type: Report from Study
  Country: GR (occurrence: GR)
  Receive Date: 20150324
  Receipt Date: 20150324
  Transmission Date: 20150721
  Serious: Yes (Death, Other)
  Sender: FDA-Public Use
  Company Number: GR-GLAXOSMITHKLINE-GR2015GSK030199

PATIENT
  Age: 63 Year
  Sex: Male
  Weight: 80 kg

DRUGS (3)
  1. ZANAMIVIR [Suspect]
     Active Substance: ZANAMIVIR
     Dosage: 600 MG, QD
     Dates: start: 20150213
  2. ZANAMIVIR [Suspect]
     Active Substance: ZANAMIVIR
     Dosage: 400 MG, QD
     Dates: start: 20150215
  3. ZANAMIVIR [Suspect]
     Active Substance: ZANAMIVIR
     Dosage: 400 MG, BID
     Dates: start: 20150213, end: 20150214

REACTIONS (1)
  - Septic shock [Fatal]

NARRATIVE: CASE EVENT DATE: 20150201
